FAERS Safety Report 8120527-9 (Version None)
Quarter: 2012Q1

REPORT INFORMATION
  Report Type: 
  Country: None (occurrence: None)
  Receive Date: 20120207
  Receipt Date: 20120126
  Transmission Date: 20120608
  Serious: Yes (Hospitalization)
  Sender: FDA-Public Use
  Company Number: JP-ALLERGAN-1116442US

PATIENT
  Age: 79 Year
  Sex: Female
  Weight: 61 kg

DRUGS (3)
  1. COMELIAN [Concomitant]
     Indication: MYOCARDIAL ISCHAEMIA
     Dosage: 100 MG, QD
     Route: 048
  2. EPINASTINE HYDROCHLORIDE [Suspect]
     Indication: EMPYEMA
     Dosage: 20 MG, QD
     Route: 048
     Dates: start: 20111130, end: 20111201
  3. LIVALO [Concomitant]
     Indication: HYPERLIPIDAEMIA
     Dosage: 0.5 MG, QD
     Route: 048

REACTIONS (1)
  - MYOCLONUS [None]
